FAERS Safety Report 7245704-0 (Version None)
Quarter: 2011Q1

REPORT INFORMATION
  Report Type: 
  Country: None (occurrence: None)
  Receive Date: 20110126
  Receipt Date: 20110125
  Transmission Date: 20110831
  Serious: Yes (Hospitalization)
  Sender: FDA-Public Use
  Company Number: FR-ABBOTT-11P-056-0700462-00

PATIENT
  Sex: Male

DRUGS (2)
  1. NOVONORM [Interacting]
     Indication: DIABETES MELLITUS
     Dates: start: 20090101
  2. ZECLAR [Suspect]
     Indication: PRODUCT USED FOR UNKNOWN INDICATION
     Dosage: DAILY DOSE: 2 DOSAGE FORMS
     Route: 048
     Dates: start: 20110110, end: 20110113

REACTIONS (2)
  - HYPOGLYCAEMIA [None]
  - DRUG INTERACTION [None]
